FAERS Safety Report 7105496-2 (Version None)
Quarter: 2010Q4

REPORT INFORMATION
  Report Type: 
  Country: None (occurrence: None)
  Receive Date: 20101110
  Receipt Date: 20101026
  Transmission Date: 20110411
  Serious: Yes (Hospitalization)
  Sender: FDA-Public Use
  Company Number: 020000

PATIENT
  Sex: Female

DRUGS (8)
  1. CERTOLIZUMAB PEGOL [Suspect]
     Indication: RHEUMATOID ARTHRITIS
     Dosage: (STUDY 275-08-003 SUBCUTANEOUS), (200 MG 1X/2 WEEKS SUBCUTANEOUS) (200 MG 1X/2 WEEKS SUBCUTANEOUS)
     Route: 058
     Dates: start: 20100108
  2. CERTOLIZUMAB PEGOL [Suspect]
     Indication: RHEUMATOID ARTHRITIS
     Dosage: (STUDY 275-08-003 SUBCUTANEOUS), (200 MG 1X/2 WEEKS SUBCUTANEOUS) (200 MG 1X/2 WEEKS SUBCUTANEOUS)
     Route: 058
     Dates: start: 20100427
  3. CERTOLIZUMAB PEGOL [Suspect]
     Indication: RHEUMATOID ARTHRITIS
     Dosage: (STUDY 275-08-003 SUBCUTANEOUS), (200 MG 1X/2 WEEKS SUBCUTANEOUS) (200 MG 1X/2 WEEKS SUBCUTANEOUS)
     Route: 058
     Dates: start: 20101012
  4. LOXOPROFEN SODIUM [Concomitant]
  5. MECOBALAMIN [Concomitant]
  6. HYALURONATE SODIUM [Concomitant]
  7. CYANOCOBALAMIN [Concomitant]
  8. DICLOFENAC SODIUM [Concomitant]

REACTIONS (7)
  - BLISTER [None]
  - ERYTHEMA [None]
  - HERPES ZOSTER [None]
  - PAIN [None]
  - PARAESTHESIA [None]
  - RASH [None]
  - SCAB [None]
